FAERS Safety Report 24636488 (Version 1)
Quarter: 2024Q4

REPORT INFORMATION
  Report Type: Spontaneous
  Country: GB (occurrence: GB)
  Receive Date: 20241119
  Receipt Date: 20241119
  Transmission Date: 20250114
  Serious: Yes (Other)
  Sender: CIPLA
  Company Number: GB-MHRA-MED-202411051125494060-LCFSY

PATIENT

DRUGS (3)
  1. TADALAFIL [Suspect]
     Active Substance: TADALAFIL
     Indication: Adverse drug reaction
     Dosage: 20 MILLIGRAM, BID (TWO DAILY)
     Route: 065
     Dates: start: 20241019
  2. BOSENTAN [Suspect]
     Active Substance: BOSENTAN
     Indication: Adverse drug reaction
     Dosage: 125 MILLIGRAM, BID (TWICE A DAY)
     Route: 065
  3. SELEXIPAG [Suspect]
     Active Substance: SELEXIPAG
     Indication: Adverse drug reaction
     Dosage: UNK (200MCG/800MCG, VARIABLE FREQUENCY)
     Route: 065

REACTIONS (5)
  - Arthralgia [Unknown]
  - Oral candidiasis [Unknown]
  - Tongue discolouration [Unknown]
  - Dyspnoea [Unknown]
  - Headache [Unknown]

NARRATIVE: CASE EVENT DATE: 20241104
